FAERS Safety Report 4922484-2 (Version None)
Quarter: 2006Q1

REPORT INFORMATION
  Report Type: 
  Country: None (occurrence: None)
  Receive Date: 20060224
  Receipt Date: 20060215
  Transmission Date: 20060701
  Serious: Yes (Hospitalization)
  Sender: FDA-Public Use
  Company Number: 2006CG00327

PATIENT
  Age: 69 Year
  Sex: Female

DRUGS (12)
  1. NOLVADEX [Suspect]
     Indication: BREAST CANCER
     Route: 048
     Dates: end: 20060113
  2. OMEPRAZOLE [Suspect]
     Route: 048
     Dates: end: 20060113
  3. MUCOMYST [Suspect]
     Route: 048
     Dates: start: 20051215, end: 20060113
  4. TAZOCILLINE [Suspect]
     Indication: ENDOCARDITIS BACTERIAL
     Route: 042
     Dates: start: 20051215, end: 20060113
  5. ATARAX [Suspect]
     Route: 048
     Dates: start: 20060102, end: 20060113
  6. TRIFLUCAN [Suspect]
     Route: 048
     Dates: start: 20051215, end: 20060113
  7. ELISOR [Suspect]
  8. COVERSYL [Suspect]
  9. LASILIX [Suspect]
  10. UMULINE PROFIL [Suspect]
  11. CORTANCYL [Suspect]
  12. SERETIDE [Suspect]
     Route: 055

REACTIONS (3)
  - AGRANULOCYTOSIS [None]
  - ENDOCARDITIS [None]
  - ERYSIPELAS [None]
